FAERS Safety Report 8331310 (Version 3)
Quarter: 2014Q2

REPORT INFORMATION
  Report Type: Spontaneous
  Country: US (occurrence: US)
  Receive Date: 20120111
  Receipt Date: 20140527
  Transmission Date: 20141212
  Serious: Yes (Other)
  Sender: FDA-Public Use
  Company Number: US-PFIZER INC-2012004942

PATIENT
  Age: 45 Year
  Sex: Female
  Weight: 97 kg

DRUGS (9)
  1. EFFEXOR XR [Suspect]
     Indication: DEPRESSION
     Dosage: 300 MG, DAILY
     Dates: start: 2008, end: 2011
  2. EFFEXOR XR [Suspect]
     Indication: SUICIDAL IDEATION
     Dosage: 150 MG, DAILY
     Dates: start: 2011, end: 201109
  3. EFFEXOR XR [Suspect]
     Indication: POST-TRAUMATIC STRESS DISORDER
     Dosage: 150 MG, DAILY
  4. NEURONTIN [Suspect]
     Indication: FIBROMYALGIA
     Dosage: 600 MG, 2X/DAY
     Dates: start: 201106, end: 2011
  5. NEURONTIN [Suspect]
     Indication: PAIN
     Dosage: 400 MG, 2X/DAY
     Dates: start: 2011
  6. NEURONTIN [Suspect]
     Indication: HYPOAESTHESIA
  7. NEURONTIN [Suspect]
     Indication: BURNING SENSATION
  8. NEURONTIN [Suspect]
     Indication: PAIN IN EXTREMITY
  9. OMEPRAZOLE [Concomitant]
     Indication: DYSPEPSIA
     Dosage: 20 MG, DAILY

REACTIONS (7)
  - Feeling abnormal [Unknown]
  - Visual impairment [Unknown]
  - Gait disturbance [Unknown]
  - Hypertension [Unknown]
  - Disturbance in attention [Unknown]
  - Burning sensation [Unknown]
  - Pain [Unknown]
